FAERS Safety Report 16508629 (Version 1)
Quarter: 2019Q3

REPORT INFORMATION
  Report Type: Spontaneous
  Country: US (occurrence: US)
  Receive Date: 20190702
  Receipt Date: 20190702
  Transmission Date: 20191004
  Serious: Yes (Hospitalization)
  Sender: FDA-Public Use
  Company Number: US-ROCHE-2167214

PATIENT
  Age: 60 Year
  Sex: Female

DRUGS (2)
  1. XELODA [Suspect]
     Active Substance: CAPECITABINE
     Indication: PRODUCT USED FOR UNKNOWN INDICATION
     Route: 048
     Dates: start: 20180502, end: 20180710
  2. XELODA [Suspect]
     Active Substance: CAPECITABINE
     Dosage: 1 MONTHS
     Route: 065

REACTIONS (2)
  - Renal abscess [Not Recovered/Not Resolved]
  - Perinephric abscess [Not Recovered/Not Resolved]

NARRATIVE: CASE EVENT DATE: 20180713
